FAERS Safety Report 7331528-2 (Version None)
Quarter: 2011Q1

REPORT INFORMATION
  Report Type: 
  Country: None (occurrence: None)
  Receive Date: 20110228
  Receipt Date: 20110228
  Transmission Date: 20110831
  Serious: Yes (Life-Threatening, Hospitalization)
  Sender: FDA-Public Use
  Company Number: None

PATIENT
  Age: 26 Year
  Sex: Female
  Weight: 81.6475 kg

DRUGS (1)
  1. BUPRENEX [Suspect]
     Dosage: 0.3MG

REACTIONS (7)
  - HEART RATE DECREASED [None]
  - DIZZINESS [None]
  - SENSATION OF HEAVINESS [None]
  - FEELING HOT [None]
  - FATIGUE [None]
  - HYPOAESTHESIA [None]
  - LOSS OF CONSCIOUSNESS [None]
